FAERS Safety Report 23093872 (Version 1)
Quarter: 2023Q4

REPORT INFORMATION
  Report Type: Report from Study
  Country: FR (occurrence: FR)
  Receive Date: 20231023
  Receipt Date: 20231023
  Transmission Date: 20240109
  Serious: Yes (Other)
  Sender: FDA-Public Use
  Company Number: FR-ABBVIE-5459418

PATIENT
  Age: 78 Year
  Sex: Female

DRUGS (2)
  1. CARBIDOPA\LEVODOPA [Suspect]
     Active Substance: CARBIDOPA\LEVODOPA
     Indication: Parkinson^s disease
     Dosage: EXTRA DOSE: 5.5 ML
     Route: 050
     Dates: start: 20231011
  2. CARBIDOPA\LEVODOPA [Suspect]
     Active Substance: CARBIDOPA\LEVODOPA
     Dosage: EXTRA DOSE: 5.0 ML
     Route: 050
     Dates: start: 20201124, end: 20231010

REACTIONS (5)
  - Chronic respiratory failure [Not Recovered/Not Resolved]
  - On and off phenomenon [Recovering/Resolving]
  - Dyskinesia [Not Recovered/Not Resolved]
  - Hallucination, visual [Not Recovered/Not Resolved]
  - Stress [Unknown]

NARRATIVE: CASE EVENT DATE: 20231011
